FAERS Safety Report 5711336-6 (Version None)
Quarter: 2008Q2

REPORT INFORMATION
  Report Type: 
  Country: None (occurrence: None)
  Receive Date: 20080421
  Receipt Date: 20080415
  Transmission Date: 20081010
  Serious: Yes (Other)
  Sender: FDA-Public Use
  Company Number: A0722816A

PATIENT
  Age: 59 Year
  Sex: Male

DRUGS (1)
  1. FEOSOL IRON THERAPY TABLETS [Suspect]
     Dosage: 2TAB PER DAY
     Route: 048

REACTIONS (3)
  - ALANINE AMINOTRANSFERASE INCREASED [None]
  - ASPARTATE AMINOTRANSFERASE INCREASED [None]
  - FAECES DISCOLOURED [None]
